FAERS Safety Report 4928521-3 (Version None)
Quarter: 2006Q1

REPORT INFORMATION
  Report Type: 
  Country: None (occurrence: None)
  Receive Date: 20060223
  Receipt Date: 20060216
  Transmission Date: 20060701
  Serious: Yes (Death, Life-Threatening, Hospitalization)
  Sender: FDA-Public Use
  Company Number: HQWYE489624JAN06

PATIENT
  Age: 67 Year
  Sex: Male

DRUGS (11)
  1. RAPAMUNE [Suspect]
     Dosage: SEE IMAGE
     Route: 048
     Dates: end: 20060120
  2. RAPAMUNE [Suspect]
     Dosage: SEE IMAGE
     Route: 048
     Dates: start: 20051226
  3. MYCOPHENOLATE MOFETIL (MYCOPHENOLATE MOFETIL, ) [Suspect]
     Indication: IMMUNOSUPPRESSANT DRUG THERAPY
     Dosage: 1000 MG 2X PER 1 DAY, ORAL
     Route: 048
     Dates: start: 20051226, end: 20060120
  4. PREDNISOLONE [Suspect]
     Indication: IMMUNOSUPPRESSANT DRUG THERAPY
     Dosage: 20 MG 1X PER 1 DAY, ORAL
     Route: 048
     Dates: start: 20051226
  5. FLUOXETINE [Concomitant]
  6. CLARITHROMYCIN [Concomitant]
  7. ATORVASTATIN CALCIUM [Concomitant]
  8. CONTRIMOXAZOLE (SULFAMETHOXAZOLE/TRIMETHOPRIM) [Concomitant]
  9. FUROSEMIDE [Concomitant]
  10. ASPIRIN [Concomitant]
  11. CYCLIZINE (CYCLIZINE) [Concomitant]

REACTIONS (16)
  - ARTERIAL HAEMORRHAGE [None]
  - ASPERGILLOSIS [None]
  - COMPLICATIONS OF TRANSPLANTED KIDNEY [None]
  - CYTOMEGALOVIRUS INFECTION [None]
  - ESCHERICHIA INFECTION [None]
  - FALL [None]
  - GRAFT INFECTION [None]
  - ILIAC VEIN OCCLUSION [None]
  - IMMUNOSUPPRESSANT DRUG LEVEL INCREASED [None]
  - MULTI-ORGAN FAILURE [None]
  - OLIGURIA [None]
  - RENAL ABSCESS [None]
  - RENAL TUBULAR NECROSIS [None]
  - RESPIRATORY TRACT INFECTION BACTERIAL [None]
  - SEPSIS [None]
  - SPUTUM CULTURE POSITIVE [None]
